FAERS Safety Report 22050960 (Version 1)
Quarter: 2023Q1

REPORT INFORMATION
  Report Type: Spontaneous
  Country: US (occurrence: None)
  Receive Date: 20230301
  Receipt Date: 20230301
  Transmission Date: 20230418
  Serious: No
  Sender: FDA-Public Use
  Company Number: None

PATIENT
  Age: 53 Year
  Sex: Male
  Weight: 113.4 kg

DRUGS (8)
  1. CLINDAMYCIN\SULFACETAMIDE\SULFUR [Suspect]
     Active Substance: CLINDAMYCIN\SULFACETAMIDE\SULFUR
     Indication: Rosacea
     Dosage: FREQUENCY : TWICE A DAY;?
     Route: 061
     Dates: start: 20230213, end: 20230215
  2. PROBENECID [Concomitant]
     Active Substance: PROBENECID
  3. CITALOPRAM [Concomitant]
     Active Substance: CITALOPRAM HYDROBROMIDE
  4. LISINOPRIL [Concomitant]
     Active Substance: LISINOPRIL
  5. BUSIPIRONE [Concomitant]
  6. SILDENAFIL [Concomitant]
     Active Substance: SILDENAFIL
  7. ADVAIR HFA [Concomitant]
     Active Substance: FLUTICASONE PROPIONATE\SALMETEROL XINAFOATE
  8. VENTOLIN HFA [Concomitant]
     Active Substance: ALBUTEROL SULFATE

REACTIONS (6)
  - Application site swelling [None]
  - Application site pain [None]
  - Application site pruritus [None]
  - Therapy cessation [None]
  - Skin weeping [None]
  - Skin disorder [None]

NARRATIVE: CASE EVENT DATE: 20230214
